FAERS Safety Report 11340404 (Version 1)
Quarter: 2015Q3

REPORT INFORMATION
  Report Type: Spontaneous
  Country: US (occurrence: None)
  Receive Date: 20150803
  Receipt Date: 20150803
  Transmission Date: 20151125
  Serious: Yes (Other)
  Sender: FDA-Public Use
  Company Number: ADR-2015-01052

PATIENT
  Age: 60 Year
  Sex: Female

DRUGS (1)
  1. BACLOFEN INTRATHECAL 2000 MCG/ML (CANGENE) [Suspect]
     Active Substance: BACLOFEN
     Indication: MUSCLE SPASTICITY

REACTIONS (10)
  - Scar [None]
  - Body temperature increased [None]
  - Hyperhidrosis [None]
  - Erythema [None]
  - Muscle spasticity [None]
  - Device kink [None]
  - Underdose [None]
  - Confusional state [None]
  - Flushing [None]
  - Withdrawal syndrome [None]
